FAERS Safety Report 8625948 (Version 2)
Quarter: 2013Q2

REPORT INFORMATION
  Report Type: Report from Study
  Country: US (occurrence: US)
  Receive Date: 20120620
  Receipt Date: 20130628
  Transmission Date: 20140414
  Serious: Yes (Hospitalization)
  Sender: FDA-Public Use
  Company Number: PHHO2011US11340

PATIENT
  Age: 67 Year
  Sex: Male
  Weight: 116.1 kg

DRUGS (17)
  1. ILARIS [Suspect]
     Indication: GOUTY ARTHRITIS
     Dosage: 150 MG, UNK
     Route: 058
     Dates: start: 20110602
  2. FUROSEMIDE [Suspect]
     Indication: OEDEMA
     Dosage: 80 MG, QD
     Route: 048
     Dates: start: 20100317
  3. JANUVIA [Concomitant]
     Indication: DIABETES MELLITUS
     Dosage: 100 MG, QD
     Route: 048
     Dates: start: 20091118
  4. CATAPRES-TTS-2 [Concomitant]
     Indication: HYPERTENSION
     Dosage: 0.2 MG, QW2
     Route: 062
     Dates: start: 20091201
  5. CARDURA [Concomitant]
     Indication: BENIGN PROSTATIC HYPERPLASIA
     Dosage: 4 MG, QD
     Route: 048
     Dates: start: 20091217, end: 20110513
  6. PROSCAR [Concomitant]
     Indication: BENIGN PROSTATIC HYPERPLASIA
     Dosage: 5 MG, QD
     Route: 048
     Dates: start: 20100312, end: 20110513
  7. PLAVIX [Concomitant]
     Indication: PROPHYLAXIS
     Dosage: 75 MG, QD
     Route: 048
     Dates: start: 20100312
  8. NITROQUICK [Concomitant]
     Indication: ANGINA PECTORIS
     Dosage: 6.4 MG, PRN
     Route: 060
     Dates: start: 20100317
  9. TRIAMCINOLONE [Concomitant]
     Indication: ARTHRITIS
     Dosage: 10 U, BID
     Route: 061
     Dates: start: 20100312
  10. ACARBOSE [Concomitant]
     Indication: DIABETES MELLITUS
     Dosage: 50 MG, TID
     Route: 048
     Dates: start: 20100325
  11. TRAMADOL [Concomitant]
     Indication: PAIN
     Dosage: 50 MG, PRN
     Route: 048
     Dates: start: 20100713
  12. OMEPRAZOLE [Concomitant]
     Indication: GASTROOESOPHAGEAL REFLUX DISEASE
     Dosage: 20 MG, BID
     Route: 048
     Dates: start: 20100722
  13. SIMVASTATIN [Concomitant]
     Indication: HYPERCHOLESTEROLAEMIA
     Dosage: 80 MG, QD
     Route: 048
     Dates: start: 20100722
  14. METOPROLOL TARTRATE [Concomitant]
     Indication: HYPERTENSION
     Dosage: 25 MG, BID
     Route: 048
     Dates: start: 20100722, end: 20110602
  15. LUTEIN [Concomitant]
     Indication: MEDICAL DIET
     Dosage: 20 MG, QD
     Route: 048
     Dates: start: 20100920
  16. FEXOFENADINE [Concomitant]
     Indication: HYPERSENSITIVITY
     Dosage: 180 MG, QD
     Route: 048
     Dates: start: 20100920
  17. COLCHICINE [Concomitant]
     Indication: GOUT
     Dosage: 0.6 MG, BID
     Route: 048
     Dates: start: 20100920

REACTIONS (2)
  - Delirium [Recovered/Resolved]
  - Concomitant disease progression [Recovered/Resolved]
